FAERS Safety Report 6876031-9 (Version None)
Quarter: 2010Q3

REPORT INFORMATION
  Report Type: 
  Country: None (occurrence: None)
  Receive Date: 20100723
  Receipt Date: 20100712
  Transmission Date: 20110219
  Serious: Yes (Death)
  Sender: FDA-Public Use
  Company Number: OMPQ-NO-1007S-0618

PATIENT
  Age: 56 Year
  Sex: Male
  Weight: 75 kg

DRUGS (2)
  1. OMNISCAN [Suspect]
     Indication: ACUTE ABDOMEN
     Dosage: 80 ML, SINGLE DOSE, I.V.
     Route: 042
     Dates: start: 20100708, end: 20100708
  2. OMNISCAN [Suspect]
     Indication: PANCREATITIS
     Dosage: 80 ML, SINGLE DOSE, I.V.
     Route: 042
     Dates: start: 20100708, end: 20100708

REACTIONS (3)
  - CARDIO-RESPIRATORY ARREST [None]
  - CHEST PAIN [None]
  - HYPERHIDROSIS [None]
